FAERS Safety Report 7137769-1 (Version None)
Quarter: 2010Q4

REPORT INFORMATION
  Report Type: 
  Country: None (occurrence: None)
  Receive Date: 20101206
  Receipt Date: 20101202
  Transmission Date: 20110411
  Serious: Yes (Death, Hospitalization, Other)
  Sender: FDA-Public Use
  Company Number: PHHY2010BR40140

PATIENT
  Age: 93 Year
  Sex: Female

DRUGS (1)
  1. DIOVAN [Suspect]
     Indication: HYPERTENSION
     Dosage: 1 TABLET (80 MG), DAILY
     Route: 048

REACTIONS (5)
  - HYPERTENSION [None]
  - INFECTION [None]
  - MULTI-ORGAN FAILURE [None]
  - NASOPHARYNGITIS [None]
  - PNEUMONIA [None]
